FAERS Safety Report 16594610 (Version 2)
Quarter: 2019Q3

REPORT INFORMATION
  Report Type: Spontaneous
  Country: DE (occurrence: DE)
  Receive Date: 20190718
  Receipt Date: 20190801
  Transmission Date: 20191004
  Serious: Yes (Hospitalization, Other)
  Sender: FDA-Public Use
  Company Number: DE-INDIVIOR LIMITED-INDV-120567-2019

PATIENT
  Age: 39 Year
  Sex: Male
  Weight: 75 kg

DRUGS (6)
  1. BUPRENORPHINE. [Suspect]
     Active Substance: BUPRENORPHINE
     Indication: DRUG DEPENDENCE
     Dosage: 16MG/DAY
     Route: 051
     Dates: start: 20160922, end: 20170420
  2. ZEPATIER [Suspect]
     Active Substance: ELBASVIR\GRAZOPREVIR
     Indication: CHRONIC HEPATITIS C
     Dosage: 50/100MG, 1 TABLET PER DAY
     Route: 048
     Dates: start: 20170323, end: 20170615
  3. FERRO-SANOL DUODENAL [Concomitant]
     Active Substance: FERROUS GLYCINE SULFATE
     Indication: PRODUCT USED FOR UNKNOWN INDICATION
     Dosage: UNK
     Route: 065
  4. RAMIPRIL. [Concomitant]
     Active Substance: RAMIPRIL
     Indication: PRODUCT USED FOR UNKNOWN INDICATION
     Dosage: UNK
     Route: 065
     Dates: start: 20180315, end: 20180404
  5. VENLAFAXINE HYDROCHLORIDE. [Concomitant]
     Active Substance: VENLAFAXINE HYDROCHLORIDE
     Indication: PRODUCT USED FOR UNKNOWN INDICATION
     Dosage: UNK
     Route: 065
  6. BUPRENORPHINE. [Suspect]
     Active Substance: BUPRENORPHINE
     Dosage: 20MG/DAY
     Route: 051
     Dates: start: 20170421

REACTIONS (13)
  - Condition aggravated [Recovered/Resolved]
  - Myalgia [Recovered/Resolved]
  - Intentional product use issue [Not Recovered/Not Resolved]
  - Acute stress disorder [Recovered/Resolved]
  - Vomiting [Recovered/Resolved]
  - Seizure [Unknown]
  - Fatigue [Recovering/Resolving]
  - Insomnia [Recovered/Resolved]
  - Pain in jaw [Recovering/Resolving]
  - Substance abuse [Unknown]
  - Headache [Recovered/Resolved]
  - Abdominal pain upper [Recovered/Resolved]
  - Arthralgia [Recovering/Resolving]

NARRATIVE: CASE EVENT DATE: 20160922
